FAERS Safety Report 4308241-9 (Version None)
Quarter: 2004Q1

REPORT INFORMATION
  Report Type: 
  Country: None (occurrence: None)
  Receive Date: 20040301
  Receipt Date: 20030912
  Transmission Date: 20041129
  Serious: No
  Sender: FDA-Public Use
  Company Number: US-BRISTOL-MYERS SQUIBB COMPANY-12389201

PATIENT
  Age: 79 Year
  Sex: Male
  Weight: 70 kg

DRUGS (5)
  1. METFORMIN HCL [Suspect]
     Indication: DIABETES MELLITUS
     Dates: end: 20030908
  2. DIGITEK [Concomitant]
  3. ECOTRIN [Concomitant]
  4. GEMFIBROZIL [Concomitant]
  5. COREG [Concomitant]

REACTIONS (1)
  - BLOOD GLUCOSE INCREASED [None]
